FAERS Safety Report 8010885-8 (Version None)
Quarter: 2011Q4

REPORT INFORMATION
  Report Type: 
  Country: None (occurrence: None)
  Receive Date: 20111228
  Receipt Date: 20111130
  Transmission Date: 20120403
  Serious: Yes (Other)
  Sender: FDA-Public Use
  Company Number: MX-SANOFI-AVENTIS-2011SA084559

PATIENT
  Age: 35 Year
  Sex: Female

DRUGS (1)
  1. TAXOTERE [Suspect]
     Route: 065

REACTIONS (21)
  - HYPOTHERMIA [None]
  - VOMITING [None]
  - MICTURITION DISORDER [None]
  - NAUSEA [None]
  - TACHYCARDIA [None]
  - ULCER [None]
  - PIGMENTATION DISORDER [None]
  - DIZZINESS [None]
  - STOMATITIS [None]
  - DIARRHOEA [None]
  - ERYTHEMA [None]
  - MYALGIA [None]
  - HAEMORRHAGE [None]
  - DYSPNOEA [None]
  - NAIL PIGMENTATION [None]
  - ASTHENIA [None]
  - DECREASED APPETITE [None]
  - ATAXIA [None]
  - CONSTIPATION [None]
  - ALOPECIA [None]
  - ARTHRALGIA [None]
